FAERS Safety Report 10420328 (Version 1)
Quarter: 2014Q3

REPORT INFORMATION
  Report Type: Spontaneous
  Country: AU (occurrence: None)
  Receive Date: 20140807
  Receipt Date: 20140807
  Transmission Date: 20150326
  Serious: Yes (Disabling)
  Sender: FDA-Public Use
  Company Number: GAM-261-14-AU

PATIENT
  Age: 17 Year
  Sex: Female

DRUGS (2)
  1. PREDNISOLONE. [Concomitant]
     Active Substance: PREDNISOLONE
  2. OCTAGAM IMMUNE GLOBULIN (HUMAN) [Suspect]
     Active Substance: HUMAN IMMUNOGLOBULIN G
     Indication: IMMUNE THROMBOCYTOPENIC PURPURA
     Dosage: 30 G (2X 1/CYCLICAL), INTRAVENOUS
     Route: 042
     Dates: start: 20140619, end: 20140620

REACTIONS (3)
  - Nausea [None]
  - Headache [None]
  - Malaise [None]

NARRATIVE: CASE EVENT DATE: 20140620
